FAERS Safety Report 20176003 (Version 1)
Quarter: 2021Q4

REPORT INFORMATION
  Report Type: Spontaneous
  Country: CA (occurrence: CA)
  Receive Date: 20211213
  Receipt Date: 20211213
  Transmission Date: 20220303
  Serious: Yes (Death, Hospitalization)
  Sender: FDA-Public Use
  Company Number: CA-TEVA-2021-CA-1985824

PATIENT
  Age: 14 Year
  Sex: Female
  Weight: 37 kg

DRUGS (39)
  1. METHOTREXATE [Suspect]
     Active Substance: METHOTREXATE
     Indication: Burkitt^s lymphoma recurrent
     Route: 037
  2. RITUXAN [Suspect]
     Active Substance: RITUXIMAB
     Indication: Burkitt^s lymphoma recurrent
     Route: 037
  3. ACETAMINOPHEN [Concomitant]
     Active Substance: ACETAMINOPHEN
  4. ACETYLCYSTEINE [Concomitant]
     Active Substance: ACETYLCYSTEINE
  5. ALTEPLASE [Concomitant]
     Active Substance: ALTEPLASE
  6. AMLODIPINE [Concomitant]
     Active Substance: AMLODIPINE BESYLATE
     Route: 065
  7. CALCIUM [Concomitant]
     Active Substance: CALCIUM
  8. CELECOXIB [Concomitant]
     Active Substance: CELECOXIB
  9. CHOLECALCIFEROL [Concomitant]
     Active Substance: CHOLECALCIFEROL
  10. CLOXACILLIN [Concomitant]
     Active Substance: CLOXACILLIN
  11. CYCLOSPORINE [Concomitant]
     Active Substance: CYCLOSPORINE
     Route: 065
  12. DIMENHYDRINATE [Concomitant]
     Active Substance: DIMENHYDRINATE
  13. DIPHENHYDRAMINE [Concomitant]
     Active Substance: DIPHENHYDRAMINE
  14. FLUCONAZOLE [Concomitant]
     Active Substance: FLUCONAZOLE
  15. GABAPENTIN [Concomitant]
     Active Substance: GABAPENTIN
  16. GANCICLOVIR [Concomitant]
     Active Substance: GANCICLOVIR
  17. GRANULOCYTE COLONY-STIMULATING FACTOR NOS [Concomitant]
     Active Substance: GRANULOCYTE COLONY-STIMULATING FACTOR NOS
  18. HYDROCORTISONE [Concomitant]
     Active Substance: HYDROCORTISONE
  19. HYDROMORPHONE [Concomitant]
     Active Substance: HYDROMORPHONE
  20. LANSOPRAZOLE [Concomitant]
     Active Substance: LANSOPRAZOLE
  21. LEUCOVORIN [Concomitant]
     Active Substance: LEUCOVORIN
  22. LEVETIRACETAM [Concomitant]
     Active Substance: LEVETIRACETAM
     Route: 065
  23. LORAZEPAM [Concomitant]
     Active Substance: LORAZEPAM
  24. MAGNESIUM [Concomitant]
     Active Substance: MAGNESIUM
  25. MELATONIN [Concomitant]
     Active Substance: MELATONIN
  26. METOCLOPRAMIDE [Concomitant]
     Active Substance: METOCLOPRAMIDE
  27. MIDAZOLAM [Concomitant]
     Active Substance: MIDAZOLAM
  28. NIFEDIPINE [Concomitant]
     Active Substance: NIFEDIPINE
  29. OLANZAPINE [Concomitant]
     Active Substance: OLANZAPINE
  30. ONDANSETRON [Concomitant]
     Active Substance: ONDANSETRON
  31. PANTOPRAZOLE [Concomitant]
     Active Substance: PANTOPRAZOLE
  32. PIPERACILLIN SODIUM\TAZOBACTAM SODIUM [Concomitant]
     Active Substance: PIPERACILLIN SODIUM\TAZOBACTAM SODIUM
  33. POLYETHYLENE GLYCOL [Concomitant]
     Active Substance: POLYETHYLENE GLYCOL
  34. POTASSIUM [Concomitant]
     Active Substance: POTASSIUM
  35. PREDNISONE [Concomitant]
     Active Substance: PREDNISONE
  36. RIZATRIPTAN [Concomitant]
     Active Substance: RIZATRIPTAN
  37. URSODIOL [Concomitant]
     Active Substance: URSODIOL
  38. VALACYCLOVIR [Concomitant]
     Active Substance: VALACYCLOVIR HYDROCHLORIDE
  39. VANCOMYCIN [Concomitant]
     Active Substance: VANCOMYCIN

REACTIONS (9)
  - Cranial nerve disorder [Fatal]
  - Dysphagia [Fatal]
  - Facial paralysis [Fatal]
  - Neurotoxicity [Fatal]
  - Oxygen saturation decreased [Fatal]
  - Polyneuropathy [Fatal]
  - Respiratory distress [Fatal]
  - Speech disorder [Fatal]
  - Toxicity to various agents [Fatal]
